FAERS Safety Report 5502327-9 (Version None)
Quarter: 2007Q4

REPORT INFORMATION
  Report Type: 
  Country: None (occurrence: None)
  Receive Date: 20071030
  Receipt Date: 20071017
  Transmission Date: 20080405
  Serious: Yes (Other)
  Sender: FDA-Public Use
  Company Number: US-SHR-US-2006-020201

PATIENT
  Age: 52 Year
  Sex: Female

DRUGS (4)
  1. BETASERON [Suspect]
     Indication: MULTIPLE SCLEROSIS
     Dosage: 8 MIU, EVERY 2D
     Route: 058
     Dates: start: 20001019
  2. METHADONE HCL [Concomitant]
     Dosage: 10 MG, UNK
     Dates: start: 20050101
  3. LYRICA [Concomitant]
     Dosage: IN THE MORNING
     Dates: start: 20040101, end: 20070101
  4. LYRICA [Concomitant]
     Dosage: AT NIGHT
     Dates: start: 20040101, end: 20070101

REACTIONS (7)
  - CONTUSION [None]
  - FALL [None]
  - HEAD INJURY [None]
  - INJECTION SITE HAEMORRHAGE [None]
  - OEDEMA PERIPHERAL [None]
  - PAIN IN EXTREMITY [None]
  - THROMBOSIS [None]
